FAERS Safety Report 14784299 (Version 3)
Quarter: 2018Q2

REPORT INFORMATION
  Report Type: Report from Study
  Country: RO (occurrence: RO)
  Receive Date: 20180420
  Receipt Date: 20180430
  Transmission Date: 20180711
  Serious: Yes (Hospitalization)
  Sender: FDA-Public Use
  Company Number: RO-PFIZER INC-2018155630

PATIENT
  Age: 66 Year
  Sex: Female
  Weight: 103 kg

DRUGS (16)
  1. ACIDUM FOLICUM [Concomitant]
     Active Substance: FOLIC ACID
     Indication: ANAEMIA
     Dosage: 1 DF, 1X/DAY
     Route: 048
     Dates: start: 20150730
  2. DIPYRIDAMOLUM [Concomitant]
     Indication: HYPERTENSION
     Dosage: 150 MG, 1X/DAY
     Route: 048
     Dates: start: 2010, end: 20160218
  3. DIOSMINE [Concomitant]
     Active Substance: DIOSMIN
     Dosage: 500 MG, 1X/DAY
     Route: 048
     Dates: start: 20140620, end: 20150920
  4. LEVOTHYROXINUM [Concomitant]
     Indication: HYPERURICAEMIA
     Dosage: 150 UG, 1X/DAY
     Route: 048
     Dates: start: 2010
  5. ACETYLSALICYLIC ACID [Suspect]
     Active Substance: ASPIRIN
     Indication: HYPERTENSION
     Dosage: 75 MG, 1X/DAY
     Route: 048
     Dates: start: 2010
  6. LANTUS [Suspect]
     Active Substance: INSULIN GLARGINE
     Indication: TYPE 2 DIABETES MELLITUS
     Dosage: 16 IU, ONCE DAILY  (AFTERNOON)
     Route: 058
     Dates: start: 2010
  7. GLIQUIDONE [Suspect]
     Active Substance: GLIQUIDONE
     Indication: TYPE 2 DIABETES MELLITUS
     Dosage: 90 MG, 1X/DAY
     Route: 048
     Dates: start: 2010
  8. ASP1517 [Suspect]
     Active Substance: ROXADUSTAT
     Dosage: 150 MG, 3 TIMES WEEKLY (WEEK 8-10)
     Route: 048
     Dates: start: 20151110, end: 20151205
  9. CLOPIDOGREL [Suspect]
     Active Substance: CLOPIDOGREL BISULFATE
     Indication: PERIPHERAL VENOUS DISEASE
     Dosage: 75 MG, 1X/DAY
     Route: 048
     Dates: start: 20160218
  10. ASP1517 [Suspect]
     Active Substance: ROXADUSTAT
     Indication: ANAEMIA
     Dosage: 100 MG, 3 TIMES WEEKLY (WEEK 0-6)
     Route: 048
     Dates: start: 20150915, end: 20151107
  11. DIOSMINE [Concomitant]
     Active Substance: DIOSMIN
     Indication: PERIPHERAL VENOUS DISEASE
     Dosage: 1000 MG, 1X/DAY
     Route: 048
     Dates: start: 20150921
  12. SORTIS [Concomitant]
     Active Substance: ATORVASTATIN
     Indication: DYSLIPIDAEMIA
     Dosage: 20 MG, 1X/DAY
     Route: 048
     Dates: start: 2010
  13. NORVASC [Suspect]
     Active Substance: AMLODIPINE BESYLATE
     Indication: HYPERTENSION
     Dosage: 10 MG, 1X/DAY
     Route: 048
     Dates: start: 2010, end: 20160218
  14. ASP1517 [Suspect]
     Active Substance: ROXADUSTAT
     Dosage: 200 MG, 3 TIMES WEEKLY  (WEEK 12-16)
     Route: 048
     Dates: start: 20151208, end: 20160116
  15. ASP1517 [Suspect]
     Active Substance: ROXADUSTAT
     Dosage: 250 MG, 3 TIMES WEEKLY  (WEEK 18-24)
     Route: 048
     Dates: start: 20160119, end: 20160302
  16. ALLOPURINOLUM [Concomitant]
     Indication: HYPERURICAEMIA
     Dosage: 200 MG, 1X/DAY
     Route: 048
     Dates: start: 2012, end: 20160218

REACTIONS (1)
  - Gastrointestinal haemorrhage [Recovered/Resolved]

NARRATIVE: CASE EVENT DATE: 20160302
